FAERS Safety Report 18626958 (Version 1)
Quarter: 2020Q4

REPORT INFORMATION
  Report Type: Spontaneous
  Country: ES (occurrence: ES)
  Receive Date: 20201217
  Receipt Date: 20201217
  Transmission Date: 20210114
  Serious: Yes (Other)
  Sender: FDA-Public Use
  Company Number: ES-SA-2020SA356477

PATIENT

DRUGS (1)
  1. CLEXANE [Suspect]
     Active Substance: ENOXAPARIN SODIUM
     Indication: COVID-19 PNEUMONIA
     Dosage: CLEXANE 80 MG PRE-FILLED SYRINGES 0.8 ML; DOSAGE: 75 MILLIGRAM (0.938 PRE-FILLED SYRINGES) EVERY 12
     Route: 058
     Dates: start: 20201114, end: 20201120

REACTIONS (1)
  - Hepatitis acute [Unknown]

NARRATIVE: CASE EVENT DATE: 20201119
